FAERS Safety Report 6741136-X (Version None)
Quarter: 2010Q2

REPORT INFORMATION
  Report Type: 
  Country: None (occurrence: None)
  Receive Date: 20100525
  Receipt Date: 20100525
  Transmission Date: 20101027
  Serious: No
  Sender: FDA-Public Use
  Company Number: None

PATIENT
  Age: 47 Year
  Sex: Female
  Weight: 47.6277 kg

DRUGS (1)
  1. LEVAQUIN [Suspect]
     Indication: SINUSITIS
     Dosage: 1 PER DAY PO
     Route: 048
     Dates: start: 20100330, end: 20100408

REACTIONS (8)
  - ARTHRALGIA [None]
  - HAIR GROWTH ABNORMAL [None]
  - INSOMNIA [None]
  - NAIL GROWTH ABNORMAL [None]
  - PANIC ATTACK [None]
  - SKIN EXFOLIATION [None]
  - TENDON RUPTURE [None]
  - TENDONITIS [None]
